FAERS Safety Report 7204451-1 (Version None)
Quarter: 2010Q4

REPORT INFORMATION
  Report Type: 
  Country: None (occurrence: None)
  Receive Date: 20101230
  Receipt Date: 20101221
  Transmission Date: 20110411
  Serious: Yes (Other)
  Sender: FDA-Public Use
  Company Number: US-ABBOTT-10P-163-0693368-00

PATIENT
  Sex: Male
  Weight: 79.45 kg

DRUGS (9)
  1. SIMCOR [Suspect]
     Indication: DYSLIPIDAEMIA
     Dosage: 1000/20
     Route: 048
     Dates: start: 20090101
  2. SIMCOR [Suspect]
     Route: 048
     Dates: start: 20100101
  3. NIASPAN [Suspect]
     Indication: DYSLIPIDAEMIA
     Route: 048
  4. LISINOPRIL [Concomitant]
     Indication: HYPERTENSION
     Route: 048
  5. DILTIAZEM [Concomitant]
     Indication: HYPERTENSION
     Route: 048
  6. ALLOPURINOL [Concomitant]
     Indication: GOUT
     Route: 050
  7. ASPIRIN [Concomitant]
     Indication: PRODUCT USED FOR UNKNOWN INDICATION
     Route: 048
  8. INDOMETHACIN [Concomitant]
     Indication: GOUT
     Dosage: AS NEEDED
     Route: 048
  9. TRICOR [Concomitant]
     Indication: PRODUCT USED FOR UNKNOWN INDICATION
     Route: 048
     Dates: start: 20100901

REACTIONS (6)
  - ARTHRALGIA [None]
  - FLUSHING [None]
  - GOUT [None]
  - HERPES ZOSTER [None]
  - MOBILITY DECREASED [None]
  - PAIN IN EXTREMITY [None]
